FAERS Safety Report 7820558-X (Version None)
Quarter: 2011Q4

REPORT INFORMATION
  Report Type: 
  Country: None (occurrence: None)
  Receive Date: 20111018
  Receipt Date: 20111012
  Transmission Date: 20120403
  Serious: Yes (Other)
  Sender: FDA-Public Use
  Company Number: PHEH2006US00794

PATIENT
  Sex: Male

DRUGS (9)
  1. ISENTRESS [Concomitant]
     Dosage: 1 DF, BID
  2. AREDIA [Suspect]
  3. INTELENCE [Concomitant]
     Dosage: 200 MG, BID
  4. ARSENIC TRIOXIDE [Concomitant]
  5. LIPITOR [Concomitant]
     Dosage: 40 MG, QD
  6. PREZISTA [Concomitant]
     Dosage: 300 MG, BID
  7. NORVIR [Concomitant]
     Dosage: 100 MG, BID
  8. KLOR-CON [Concomitant]
     Dosage: 20 MG, BID
  9. ZOMETA [Suspect]

REACTIONS (21)
  - LIFE EXPECTANCY SHORTENED [None]
  - HYPERTENSION [None]
  - MULTIPLE MYELOMA [None]
  - EMOTIONAL DISTRESS [None]
  - TACHYCARDIA [None]
  - DYSPNOEA [None]
  - VENTRICULAR HYPOKINESIA [None]
  - SPINAL COMPRESSION FRACTURE [None]
  - OSTEOPENIA [None]
  - INTERMITTENT CLAUDICATION [None]
  - EATING DISORDER [None]
  - CEREBRAL ATROPHY [None]
  - CARDIOMYOPATHY [None]
  - HIV INFECTION [None]
  - PAIN [None]
  - BONE LESION [None]
  - POLYP [None]
  - DYSLIPIDAEMIA [None]
  - OSTEONECROSIS OF JAW [None]
  - LEFT VENTRICULAR DYSFUNCTION [None]
  - MITRAL VALVE INCOMPETENCE [None]
